FAERS Safety Report 10065354 (Version 1)
Quarter: 2014Q2

REPORT INFORMATION
  Report Type: Spontaneous
  Country: US (occurrence: None)
  Receive Date: 20140407
  Receipt Date: 20140407
  Transmission Date: 20141212
  Serious: Yes (Other)
  Sender: FDA-Public Use
  Company Number: None

PATIENT
  Age: 39 Year
  Sex: Female
  Weight: 55.34 kg

DRUGS (1)
  1. LEVOTHYROXINE [Suspect]
     Dosage: 1 TAB. DAILY, ORAL
     Route: 048
     Dates: start: 201205, end: 201208

REACTIONS (5)
  - Fatigue [None]
  - Alopecia [None]
  - Nausea [None]
  - Mood swings [None]
  - Drug ineffective [None]
